FAERS Safety Report 7225851-X (Version None)
Quarter: 2011Q1

REPORT INFORMATION
  Report Type: 
  Country: None (occurrence: None)
  Receive Date: 20110107
  Receipt Date: 20110107
  Transmission Date: 20110831
  Serious: Yes (Other)
  Sender: FDA-Public Use
  Company Number: None

PATIENT
  Age: 11 Year
  Sex: Male
  Weight: 50 kg

DRUGS (2)
  1. ABILIFY [Concomitant]
  2. LEXAPRO [Suspect]
     Indication: MAJOR DEPRESSION
     Dosage: 10 MG QHS PO
     Route: 048
     Dates: start: 20100810, end: 20101231

REACTIONS (4)
  - DEPRESSIVE SYMPTOM [None]
  - SUICIDAL IDEATION [None]
  - CONDITION AGGRAVATED [None]
  - PRODUCT QUALITY ISSUE [None]
